FAERS Safety Report 14173479 (Version 1)
Quarter: 2017Q4

REPORT INFORMATION
  Report Type: Report from Study
  Country: US (occurrence: US)
  Receive Date: 20171109
  Receipt Date: 20171109
  Transmission Date: 20180321
  Serious: No
  Sender: FDA-Public Use
  Company Number: US-ACADIA PHARMACEUTICALS INC.-ACA-2017-005443

PATIENT
  Sex: Female
  Weight: 54.42 kg

DRUGS (3)
  1. NUPLAZID [Suspect]
     Active Substance: PIMAVANSERIN TARTRATE
     Indication: HALLUCINATION
     Dosage: 34 MG, QD AT BEDTIME
     Route: 048
     Dates: start: 20170928
  2. NUPLAZID [Suspect]
     Active Substance: PIMAVANSERIN TARTRATE
     Indication: PARKINSON^S DISEASE PSYCHOSIS
     Dosage: 17 MG, QD
     Route: 048
     Dates: start: 201708
  3. NUPLAZID [Suspect]
     Active Substance: PIMAVANSERIN TARTRATE
     Indication: DELUSION
     Dosage: 17 MG, QD AT BEDTIME
     Route: 048

REACTIONS (5)
  - Prescribed underdose [Unknown]
  - Fatigue [Recovering/Resolving]
  - Irritability [Recovering/Resolving]
  - Hypersomnia [Recovering/Resolving]
  - Delusion [Unknown]
